FAERS Safety Report 10034122 (Version 1)
Quarter: 2014Q1

REPORT INFORMATION
  Report Type: Spontaneous
  Country: US (occurrence: None)
  Receive Date: 20140324
  Receipt Date: 20140324
  Transmission Date: 20141002
  Serious: Yes (Disabling)
  Sender: FDA-Public Use
  Company Number: None

PATIENT
  Age: 29 Year
  Sex: Female
  Weight: 127.01 kg

DRUGS (2)
  1. LUPRON [Suspect]
     Indication: ENDOMETRIOSIS
     Dosage: EVERY 3 MONTHS INTO THE MUSCLE
     Route: 030
     Dates: start: 20131217, end: 20140227
  2. LUPRON [Suspect]
     Indication: PELVIC PAIN
     Dosage: EVERY 3 MONTHS INTO THE MUSCLE
     Route: 030
     Dates: start: 20131217, end: 20140227

REACTIONS (5)
  - Muscular weakness [None]
  - Muscle spasms [None]
  - Mood swings [None]
  - Unevaluable event [None]
  - Insomnia [None]
